FAERS Safety Report 4927934-3 (Version None)
Quarter: 2006Q1

REPORT INFORMATION
  Report Type: 
  Country: None (occurrence: None)
  Receive Date: 20060223
  Receipt Date: 20060208
  Transmission Date: 20060701
  Serious: Yes (Other)
  Sender: FDA-Public Use
  Company Number: 2006023978

PATIENT
  Sex: Male

DRUGS (1)
  1. NEURONTIN [Suspect]
     Indication: ILL-DEFINED DISORDER

REACTIONS (4)
  - DRY EYE [None]
  - EYE PAIN [None]
  - NECK INJURY [None]
  - SPINAL FRACTURE [None]
